FAERS Safety Report 7624046-5 (Version None)
Quarter: 2011Q3

REPORT INFORMATION
  Report Type: 
  Country: None (occurrence: None)
  Receive Date: 20110720
  Receipt Date: 20110705
  Transmission Date: 20111222
  Serious: Yes (Other)
  Sender: FDA-Public Use
  Company Number: PHHY2011US50858

PATIENT
  Sex: Male

DRUGS (2)
  1. RISPERDAL [Concomitant]
     Dosage: 1-2  DF, QHS
  2. AFINITOR [Suspect]
     Indication: TUBEROUS SCLEROSIS
     Dosage: 2.5 MG, DAILY
     Route: 048
     Dates: start: 20110507, end: 20110516

REACTIONS (4)
  - ASTHMA [None]
  - PYREXIA [None]
  - SINUSITIS [None]
  - PNEUMONIA [None]
